FAERS Safety Report 6797367-6 (Version None)
Quarter: 2010Q2

REPORT INFORMATION
  Report Type: 
  Country: None (occurrence: None)
  Receive Date: 20100623
  Receipt Date: 20100611
  Transmission Date: 20101027
  Serious: Yes (Hospitalization)
  Sender: FDA-Public Use
  Company Number: 2010EN000102

PATIENT
  Age: 9 Year
  Sex: Male
  Weight: 43.1 kg

DRUGS (7)
  1. ONCASPAR [Suspect]
     Indication: ACUTE LYMPHOCYTIC LEUKAEMIA
     Dosage: 3575 IU;X1;IV, 3300 IU;X1;IV, 3300 IU;X1;IV
     Route: 042
     Dates: start: 20091117, end: 20091117
  2. ONCASPAR [Suspect]
     Indication: ACUTE LYMPHOCYTIC LEUKAEMIA
     Dosage: 3575 IU;X1;IV, 3300 IU;X1;IV, 3300 IU;X1;IV
     Route: 042
     Dates: start: 20100309, end: 20100309
  3. ONCASPAR [Suspect]
     Indication: ACUTE LYMPHOCYTIC LEUKAEMIA
     Dosage: 3575 IU;X1;IV, 3300 IU;X1;IV, 3300 IU;X1;IV
     Route: 042
     Dates: start: 20100330, end: 20100330
  4. METHOTREXATE [Suspect]
     Indication: ACUTE LYMPHOCYTIC LEUKAEMIA
     Dosage: 130 MG;X1;IV, 15 MG;X1;INTH, 80 MG;X1;IV
     Route: 042
     Dates: start: 20100308, end: 20100308
  5. METHOTREXATE [Suspect]
     Indication: ACUTE LYMPHOCYTIC LEUKAEMIA
     Dosage: 130 MG;X1;IV, 15 MG;X1;INTH, 80 MG;X1;IV
     Route: 042
     Dates: start: 20100308, end: 20100308
  6. METHOTREXATE [Suspect]
     Indication: ACUTE LYMPHOCYTIC LEUKAEMIA
     Dosage: 130 MG;X1;IV, 15 MG;X1;INTH, 80 MG;X1;IV
     Route: 042
     Dates: end: 20100412
  7. VINCRISTINE [Concomitant]

REACTIONS (14)
  - ACTIVATED PARTIAL THROMBOPLASTIN TIME PROLONGED [None]
  - ANAEMIA [None]
  - DEHYDRATION [None]
  - HAEMATEMESIS [None]
  - HYPERBILIRUBINAEMIA [None]
  - HYPERGLYCAEMIA [None]
  - LEUKOPENIA [None]
  - MUCOSAL INFLAMMATION [None]
  - ORAL PAIN [None]
  - OROPHARYNGEAL PAIN [None]
  - PYREXIA [None]
  - THROMBOCYTOPENIA [None]
  - VOMITING [None]
  - WEIGHT DECREASED [None]
